FAERS Safety Report 7334893-5 (Version None)
Quarter: 2011Q1

REPORT INFORMATION
  Report Type: 
  Country: None (occurrence: None)
  Receive Date: 20110307
  Receipt Date: 20110223
  Transmission Date: 20110831
  Serious: Yes (Hospitalization, Other)
  Sender: FDA-Public Use
  Company Number: US-ROCHE-717513

PATIENT
  Sex: Female
  Weight: 59 kg

DRUGS (14)
  1. ACCUTANE [Suspect]
     Route: 048
     Dates: start: 19991027, end: 20000524
  2. CLARAVIS [Suspect]
     Route: 048
     Dates: start: 20040909
  3. SOTRET [Suspect]
     Route: 048
     Dates: start: 20080101
  4. ORTHO TRI-CYCLEN [Concomitant]
  5. ACCUTANE [Suspect]
     Dosage: THERAPY FOR TEN DAYS.
     Route: 048
     Dates: start: 20081117, end: 20081127
  6. SOTRET [Suspect]
     Indication: ACNE
     Route: 048
     Dates: start: 20050101
  7. ACCUTANE [Suspect]
     Indication: ACNE
     Route: 048
     Dates: start: 19990922
  8. ACCUTANE [Suspect]
     Route: 048
     Dates: start: 20040318, end: 20040401
  9. CLARAVIS [Suspect]
     Indication: ACNE
     Route: 048
     Dates: start: 20040528
  10. CLARAVIS [Suspect]
     Route: 048
     Dates: start: 20090101
  11. SOTRET [Suspect]
     Route: 048
     Dates: start: 20090101
  12. CLARAVIS [Suspect]
     Route: 048
     Dates: start: 20080101
  13. SINGULAIR [Concomitant]
  14. ZYRTEC [Concomitant]

REACTIONS (11)
  - PITYRIASIS ALBA [None]
  - MOOD ALTERED [None]
  - ANAL FISSURE [None]
  - INFLAMMATORY BOWEL DISEASE [None]
  - ORAL HERPES [None]
  - IRON DEFICIENCY ANAEMIA [None]
  - DEPRESSION [None]
  - COLITIS [None]
  - CROHN'S DISEASE [None]
  - DRY EYE [None]
  - INFECTED CYST [None]
